FAERS Safety Report 8686295 (Version 2)
Quarter: 2013Q4

REPORT INFORMATION
  Report Type: Spontaneous
  Country: US (occurrence: US)
  Receive Date: 20120726
  Receipt Date: 20131217
  Transmission Date: 20140711
  Serious: No
  Sender: FDA-Public Use
  Company Number: US-ASTRAZENECA-2011SE61075

PATIENT
  Age: 49 Year
  Sex: Male

DRUGS (12)
  1. SEROQUEL [Suspect]
     Indication: BIPOLAR I DISORDER
     Route: 048
     Dates: start: 2000
  2. SEROQUEL [Suspect]
     Indication: BIPOLAR DISORDER
     Route: 048
     Dates: start: 2000
  3. SEROQUEL [Suspect]
     Indication: BIPOLAR I DISORDER
     Route: 048
  4. SEROQUEL [Suspect]
     Indication: BIPOLAR DISORDER
     Route: 048
  5. SEROQUEL [Suspect]
     Indication: BIPOLAR I DISORDER
     Route: 048
  6. SEROQUEL [Suspect]
     Indication: BIPOLAR DISORDER
     Route: 048
  7. LITHIUM [Concomitant]
     Indication: MOOD SWINGS
     Dates: start: 2006
  8. LITHIUM [Concomitant]
     Indication: MOOD SWINGS
     Route: 048
     Dates: start: 2006
  9. GENERIC PROZAC [Concomitant]
     Indication: DEPRESSION
     Route: 048
     Dates: start: 2006
  10. LEVOTHYROXINE [Concomitant]
     Indication: THYROID DISORDER
     Route: 048
     Dates: start: 2006
  11. DEPAKOTE [Concomitant]
  12. SYNTHROID [Concomitant]

REACTIONS (5)
  - Feeling abnormal [Unknown]
  - Somnolence [Unknown]
  - Somnolence [Unknown]
  - Intentional drug misuse [Unknown]
  - Drug dose omission [Unknown]
